FAERS Safety Report 25347977 (Version 1)
Quarter: 2025Q2

REPORT INFORMATION
  Report Type: Spontaneous
  Country: US (occurrence: US)
  Receive Date: 20250522
  Receipt Date: 20250522
  Transmission Date: 20250716
  Serious: Yes (Other)
  Sender: BAYER HEALTHCARE LLC
  Company Number: US-BAYER-2025A066704

PATIENT
  Age: 38 Year
  Sex: Female

DRUGS (3)
  1. ASPIRIN [Suspect]
     Active Substance: ASPIRIN
     Indication: Pregnancy
  2. IBUPROFEN [Suspect]
     Active Substance: IBUPROFEN
  3. ACETAMINOPHEN [Suspect]
     Active Substance: ACETAMINOPHEN

REACTIONS (7)
  - Succenturiate placenta [None]
  - Duodenal ulcer perforation [None]
  - Arrested labour [None]
  - Product use in unapproved indication [None]
  - Product prescribing issue [None]
  - Maternal exposure during pregnancy [None]
  - Contraindicated product administered [None]
